FAERS Safety Report 15821470 (Version 1)
Quarter: 2019Q1

REPORT INFORMATION
  Report Type: Spontaneous
  Country: None (occurrence: US)
  Receive Date: 20190114
  Receipt Date: 20190114
  Transmission Date: 20190417
  Serious: No
  Sender: FDA-Public Use
  Company Number: US-ALLERGAN-1827574US

PATIENT
  Age: 56 Year
  Sex: Male

DRUGS (1)
  1. URSODEOXYCHOLIC ACID UNK [Suspect]
     Active Substance: URSODIOL
     Indication: CHOLELITHIASIS
     Dosage: 300 MG, QD
     Route: 065
     Dates: start: 201706

REACTIONS (1)
  - Therapeutic response unexpected [Unknown]
